FAERS Safety Report 22145786 (Version 1)
Quarter: 2023Q1

REPORT INFORMATION
  Report Type: Spontaneous
  Country: US (occurrence: None)
  Receive Date: 20230327
  Receipt Date: 20230327
  Transmission Date: 20230418
  Serious: Yes (Other)
  Sender: FDA-Public Use
  Company Number: None

PATIENT
  Age: 27 Year
  Sex: Female
  Weight: 55.8 kg

DRUGS (4)
  1. RECTIV [Suspect]
     Active Substance: NITROGLYCERIN
     Indication: Anal fissure
     Dosage: FREQUENCY : EVERY 12 HOURS;?
     Route: 054
     Dates: start: 20230325, end: 20230326
  2. Vitamin D2 weekly [Concomitant]
  3. VITAMINS [Concomitant]
     Active Substance: VITAMINS
  4. VITAMIN C [Concomitant]
     Active Substance: ASCORBIC ACID

REACTIONS (7)
  - Dizziness [None]
  - Dizziness [None]
  - Abdominal pain [None]
  - Presyncope [None]
  - Tremor [None]
  - Hot flush [None]
  - Vomiting [None]

NARRATIVE: CASE EVENT DATE: 20230326
